FAERS Safety Report 7543403-9 (Version None)
Quarter: 2011Q2

REPORT INFORMATION
  Report Type: 
  Country: None (occurrence: None)
  Receive Date: 20110613
  Receipt Date: 20110609
  Transmission Date: 20111010
  Serious: Yes (Life-Threatening, Other)
  Sender: FDA-Public Use
  Company Number: JP-PFIZER INC-2010081873

PATIENT
  Age: 73 Year
  Sex: Male

DRUGS (5)
  1. MINOCYCLINE HCL [Suspect]
     Indication: PNEUMONIA
     Dosage: 100 MG, 2X/DAY
     Route: 041
     Dates: start: 20100602, end: 20100613
  2. MINOCYCLINE HCL [Suspect]
     Indication: STAPHYLOCOCCAL INFECTION
  3. ZYVOX [Suspect]
     Indication: STAPHYLOCOCCAL SEPSIS
     Dosage: 600 MG, 2X/DAY
     Route: 041
     Dates: start: 20100606, end: 20100615
  4. ZYVOX [Suspect]
     Indication: STAPHYLOCOCCAL INFECTION
  5. HABEKACIN [Concomitant]
     Indication: STAPHYLOCOCCAL SEPSIS
     Dosage: 150 MG, 1X/DAY
     Route: 042
     Dates: start: 20100603, end: 20100605

REACTIONS (9)
  - HEPATIC FUNCTION ABNORMAL [None]
  - ALANINE AMINOTRANSFERASE INCREASED [None]
  - GAMMA-GLUTAMYLTRANSFERASE INCREASED [None]
  - BLOOD BILIRUBIN INCREASED [None]
  - JAUNDICE [None]
  - BONE MARROW FAILURE [None]
  - PLATELET COUNT DECREASED [None]
  - ASPARTATE AMINOTRANSFERASE INCREASED [None]
  - BLOOD LACTATE DEHYDROGENASE INCREASED [None]
